FAERS Safety Report 22873692 (Version 3)
Quarter: 2023Q4

REPORT INFORMATION
  Report Type: Spontaneous
  Country: US (occurrence: US)
  Receive Date: 20230828
  Receipt Date: 20231031
  Transmission Date: 20240110
  Serious: Yes (Other)
  Sender: FDA-Public Use
  Company Number: US-SA-SAC20230823000619

PATIENT
  Age: 58 Year
  Sex: Male
  Weight: 90 kg

DRUGS (6)
  1. DUPIXENT [Suspect]
     Active Substance: DUPILUMAB
     Indication: Asthma
     Dosage: UNKNOWN LOADING DOSE ,TWICE, 1X
     Route: 058
  2. DUPIXENT [Suspect]
     Active Substance: DUPILUMAB
     Dosage: 300 MG, QOW
     Route: 058
     Dates: start: 2023
  3. NUCALA [Concomitant]
     Active Substance: MEPOLIZUMAB
     Dosage: UNK
  4. PREDNISONE [Concomitant]
     Active Substance: PREDNISONE
     Dosage: UNK
  5. ALBUTEROL SULFATE [Concomitant]
     Active Substance: ALBUTEROL SULFATE
     Dosage: UNK
  6. ALBUTEROL SULFATE [Concomitant]
     Active Substance: ALBUTEROL SULFATE
     Indication: Asthma
     Dosage: UNK

REACTIONS (7)
  - Syncope [Unknown]
  - Loss of consciousness [Unknown]
  - Eye movement disorder [Unknown]
  - Tremor [Unknown]
  - Fall [Unknown]
  - Injury [Unknown]
  - Extra dose administered [Unknown]

NARRATIVE: CASE EVENT DATE: 20231001
